FAERS Safety Report 9183801 (Version 1)
Quarter: 2013Q1

REPORT INFORMATION
  Report Type: Spontaneous
  Country: US (occurrence: US)
  Receive Date: 20130322
  Receipt Date: 20130322
  Transmission Date: 20140127
  Serious: Yes (Hospitalization)
  Sender: FDA-Public Use
  Company Number: US-BRISTOL-MYERS SQUIBB COMPANY-16612665

PATIENT
  Age: 65 Year
  Sex: Male

DRUGS (16)
  1. ERBITUX [Suspect]
     Indication: HEAD AND NECK CANCER
     Dosage: STANDARD 400 MG/M2,LOADING DOSE:30APR2012
     Dates: start: 20120430
  2. ASPIRIN [Concomitant]
  3. COMBIVENT [Concomitant]
  4. DIAZEPAM [Concomitant]
  5. DOCUSATE [Concomitant]
  6. FUROSEMIDE [Concomitant]
  7. GABAPENTIN [Concomitant]
  8. DILAUDID [Concomitant]
  9. NOVOLIN R [Concomitant]
  10. ISORDIL [Concomitant]
  11. METOPROLOL [Concomitant]
  12. NEXIUM [Concomitant]
  13. NYSTATIN [Concomitant]
  14. SEROQUEL [Concomitant]
  15. PRAVASTATIN SODIUM [Concomitant]
  16. PROAIR HFA [Concomitant]

REACTIONS (1)
  - Pneumonia [Recovered/Resolved]
